FAERS Safety Report 15655301 (Version 1)
Quarter: 2018Q4

REPORT INFORMATION
  Report Type: Spontaneous
  Country: US (occurrence: US)
  Receive Date: 20181126
  Receipt Date: 20181126
  Transmission Date: 20190205
  Serious: No
  Sender: FDA-Public Use
  Company Number: US-AMGEN-USASP2018166095

PATIENT
  Age: 70 Year
  Sex: Male

DRUGS (15)
  1. FERROUS GLUCONATE [Concomitant]
     Active Substance: FERROUS GLUCONATE
     Dosage: UNK UNK, 3 TIMES/WK
  2. FUROSEMIDE. [Concomitant]
     Active Substance: FUROSEMIDE
     Dosage: 80 MG, QD
  3. ASPIRIN. [Concomitant]
     Active Substance: ASPIRIN
     Dosage: 81 MG, QD
  4. SENNA [Concomitant]
     Active Substance: SENNA LEAF\SENNOSIDES\SENNOSIDES A AND B
     Dosage: 2 DF, (2 TABLETS NIGHTLY) UNK
  5. MIDODRINE [Concomitant]
     Active Substance: MIDODRINE
     Dosage: 5 MG, 3 TIMES/WK
  6. CULTURELLE [Concomitant]
     Active Substance: LACTOBACILLUS RHAMNOSUS
     Dosage: UNK UNK, QD
  7. ARANESP [Suspect]
     Active Substance: DARBEPOETIN ALFA
     Indication: PRODUCT USED FOR UNKNOWN INDICATION
     Dosage: UNK, QWK
     Route: 065
  8. THIAMIN [Concomitant]
     Active Substance: THIAMINE
     Dosage: 100 MG, QD
  9. VANCOMYCIN [Concomitant]
     Active Substance: VANCOMYCIN
     Dosage: UNK UNK, 3 TIMES/WK
  10. ZOLPIDEM [Concomitant]
     Active Substance: ZOLPIDEM\ZOLPIDEM TARTRATE
     Dosage: UNK UNK, QD (NIGHTLY AS NEEDED)
  11. MAGNESIUM [Concomitant]
     Active Substance: MAGNESIUM
     Dosage: 40 MG, QD
  12. PANTOPRAZOLE [Concomitant]
     Active Substance: PANTOPRAZOLE
     Dosage: 40 MG, QD
  13. PYRIDOXINE [Concomitant]
     Active Substance: PYRIDOXINE
     Dosage: 100 MG, QD
  14. ARANESP [Suspect]
     Active Substance: DARBEPOETIN ALFA
     Dosage: UNK, Q2WK
     Route: 065
     Dates: start: 20181107
  15. TRAMADOL. [Concomitant]
     Active Substance: TRAMADOL
     Dosage: 50 MG, BID

REACTIONS (2)
  - Haemoglobin decreased [Not Recovered/Not Resolved]
  - Off label use [Unknown]

NARRATIVE: CASE EVENT DATE: 20181105
